FAERS Safety Report 13461565 (Version 1)
Quarter: 2017Q2

REPORT INFORMATION
  Report Type: Spontaneous
  Country: GB (occurrence: GB)
  Receive Date: 20170420
  Receipt Date: 20170420
  Transmission Date: 20170830
  Serious: Yes (Disabling, Other)
  Sender: FDA-Public Use
  Company Number: GB-JNJFOC-20170414548

PATIENT
  Age: 52 Year
  Sex: Female

DRUGS (1)
  1. NORETHISTERONE [Suspect]
     Active Substance: NORETHINDRONE
     Indication: EPICONDYLITIS
     Route: 065

REACTIONS (2)
  - Thyroid hormones decreased [Not Recovered/Not Resolved]
  - Dysgeusia [Recovering/Resolving]
